FAERS Safety Report 20842751 (Version 2)
Quarter: 2022Q3

REPORT INFORMATION
  Report Type: Report from Study
  Country: CA (occurrence: CA)
  Receive Date: 20220518
  Receipt Date: 20220704
  Transmission Date: 20221026
  Serious: Yes (Other)
  Sender: FDA-Public Use
  Company Number: CA-BAUSCH-BL-2022-011936

PATIENT
  Age: 35 Year
  Sex: Male

DRUGS (2)
  1. SILIQ [Suspect]
     Active Substance: BRODALUMAB
     Indication: Psoriasis
     Dosage: 210MG/1.5ML, WEEKLY, WEEK 0 - 14/APR/2022, WEEK 1 - 21/APR/2022, WEEK 2 - 28/APR/2022
     Route: 058
     Dates: start: 20220414, end: 20220428
  2. SILIQ [Suspect]
     Active Substance: BRODALUMAB
     Dosage: 210MG/1.5ML Q2WEEKS
     Route: 058
     Dates: start: 2022, end: 2022

REACTIONS (5)
  - Suicidal ideation [Unknown]
  - Fatigue [Unknown]
  - Crying [Unknown]
  - Social avoidant behaviour [Unknown]
  - Therapy cessation [Unknown]

NARRATIVE: CASE EVENT DATE: 20220101
